FAERS Safety Report 7350936-7 (Version None)
Quarter: 2011Q1

REPORT INFORMATION
  Report Type: 
  Country: None (occurrence: None)
  Receive Date: 20110314
  Receipt Date: 20110311
  Transmission Date: 20110831
  Serious: Yes (Other)
  Sender: FDA-Public Use
  Company Number: US-PFIZER INC-2009226478

PATIENT
  Sex: Female
  Weight: 69.841 kg

DRUGS (6)
  1. BUPROPION [Concomitant]
     Dosage: 300 MG, UNK
  2. ESCITALOPRAM [Concomitant]
     Dosage: 10 MG, UNK
  3. CLONAZEPAM [Concomitant]
  4. NOLVADEX [Suspect]
  5. CHANTIX [Suspect]
     Indication: SMOKING CESSATION THERAPY
     Dosage: 1 MG, 2X/DAY
     Dates: start: 20090404
  6. NOLVADEX [Suspect]
     Indication: BREAST CANCER
     Dates: start: 20090501, end: 20090601

REACTIONS (7)
  - FALL [None]
  - DIZZINESS [None]
  - SPEECH DISORDER [None]
  - BLOOD PRESSURE INCREASED [None]
  - PAIN IN EXTREMITY [None]
  - HYPOTENSION [None]
  - BRADYCARDIA [None]
